FAERS Safety Report 4869721-0 (Version None)
Quarter: 2005Q4

REPORT INFORMATION
  Report Type: 
  Country: None (occurrence: None)
  Receive Date: 20051223
  Receipt Date: 20051212
  Transmission Date: 20060501
  Serious: Yes (Death)
  Sender: FDA-Public Use
  Company Number: B0403629A

PATIENT
  Age: 65 Year
  Sex: Male

DRUGS (3)
  1. LEUKERAN [Suspect]
     Indication: WALDENSTROM'S MACROGLOBULINAEMIA
     Dosage: CYCLIC / ORAL
     Route: 048
  2. FLUDARABINE PHOSPHATE [Suspect]
     Indication: WALDENSTROM'S MACROGLOBULINAEMIA
     Dosage: CYCLIC
  3. PREDNISOLONE [Concomitant]

REACTIONS (4)
  - COUGH [None]
  - DYSPNOEA [None]
  - KARYOTYPE ANALYSIS ABNORMAL [None]
  - MYELODYSPLASTIC SYNDROME [None]
